FAERS Safety Report 7861654-0 (Version None)
Quarter: 2011Q4

REPORT INFORMATION
  Report Type: 
  Country: None (occurrence: None)
  Receive Date: 20111027
  Receipt Date: 20111018
  Transmission Date: 20120403
  Serious: No
  Sender: FDA-Public Use
  Company Number: GB-NOVOPROD-335344

PATIENT

DRUGS (1)
  1. LIRAGLUTIDE FLEXPEN [Suspect]
     Indication: TYPE 2 DIABETES MELLITUS
     Dosage: 0.6 MG, QD
     Route: 058
     Dates: start: 20110819, end: 20110824

REACTIONS (4)
  - HYPERHIDROSIS [None]
  - DIZZINESS [None]
  - NAUSEA [None]
  - CONSTIPATION [None]
